FAERS Safety Report 14224019 (Version 1)
Quarter: 2017Q4

REPORT INFORMATION
  Report Type: Spontaneous
  Country: US (occurrence: US)
  Receive Date: 20171123
  Receipt Date: 20171123
  Transmission Date: 20180321
  Serious: Yes (Hospitalization)
  Sender: FDA-Public Use
  Company Number: None

PATIENT
  Sex: Female
  Weight: 82.35 kg

DRUGS (11)
  1. EXCEDRIN [Concomitant]
     Active Substance: ACETAMINOPHEN\ASPIRIN\CAFFEINE
  2. LETROZOLE. [Concomitant]
     Active Substance: LETROZOLE
  3. SYNTHROID [Concomitant]
     Active Substance: LEVOTHYROXINE SODIUM
  4. VALIUM [Concomitant]
     Active Substance: DIAZEPAM
  5. CENTRUM [Concomitant]
     Active Substance: VITAMINS
  6. LIVALO [Suspect]
     Active Substance: PITAVASTATIN CALCIUM
     Indication: BLOOD CHOLESTEROL INCREASED
     Dosage: ?          QUANTITY:1 TABLET(S);?
     Route: 048
     Dates: start: 20171108, end: 20171121
  7. AMLODIPINBE BESYLATE [Concomitant]
  8. ZETIA [Concomitant]
     Active Substance: EZETIMIBE
  9. NEXIUM [Concomitant]
     Active Substance: ESOMEPRAZOLE MAGNESIUM
  10. BENADRYL [Concomitant]
     Active Substance: DIPHENHYDRAMINE HYDROCHLORIDE
  11. SPIRONOLACTONE. [Concomitant]
     Active Substance: SPIRONOLACTONE

REACTIONS (4)
  - Dyspnoea [None]
  - Musculoskeletal pain [None]
  - Myocardial infarction [None]
  - Chest pain [None]

NARRATIVE: CASE EVENT DATE: 20171121
